FAERS Safety Report 9688255 (Version 1)
Quarter: 2013Q4

REPORT INFORMATION
  Report Type: Spontaneous
  Country: GB (occurrence: GB)
  Receive Date: 20131114
  Receipt Date: 20131114
  Transmission Date: 20140711
  Serious: Yes (Hospitalization)
  Sender: FDA-Public Use
  Company Number: GB-UCBSA-102749

PATIENT
  Age: 48 Year
  Sex: Female
  Weight: 62 kg

DRUGS (6)
  1. CIMZIA [Suspect]
     Indication: RHEUMATOID ARTHRITIS
     Route: 058
     Dates: start: 20130916, end: 20130916
  2. BRICANYL [Concomitant]
  3. FENTANYL [Concomitant]
  4. LANSOPRAZOLE [Concomitant]
  5. PARACETAMOL [Concomitant]
  6. PREDNISOLONE [Concomitant]

REACTIONS (7)
  - Fatigue [Recovered/Resolved]
  - Hyperhidrosis [Recovered/Resolved]
  - Syncope [Recovered/Resolved]
  - Hypersensitivity [Recovered/Resolved]
  - Injection site urticaria [Recovered/Resolved]
  - Paraesthesia [Recovered/Resolved]
  - Paraesthesia oral [Recovered/Resolved]
